FAERS Safety Report 6516057-8 (Version None)
Quarter: 2009Q4

REPORT INFORMATION
  Report Type: 
  Country: None (occurrence: None)
  Receive Date: 20091223
  Receipt Date: 20040602
  Transmission Date: 20100525
  Serious: Yes (Death)
  Sender: FDA-Public Use
  Company Number: GB-SOLVAY-00309007937

PATIENT
  Age: 8099 Day
  Sex: Male
  Weight: 54 kg

DRUGS (3)
  1. CREON [Suspect]
     Indication: DRUG USE FOR UNKNOWN INDICATION
     Dosage: DAILY DOSE:  UNKNOWN, AVERAGE DAILY: 15, LIPASE UNITS/KG/DAY: 12.000
     Route: 065
     Dates: start: 20030101
  2. CREON [Suspect]
     Dosage: DAILY DOSE:  UNKNOWN, AVERAGE DAILY: 14, LIPASE UNITS/KG/DAY: 10.769
     Route: 065
  3. CREON [Suspect]
     Dosage: DAILY DOSE:  UNKNOWN
     Route: 065

REACTIONS (2)
  - DEATH [None]
  - RESPIRATORY FAILURE [None]
